FAERS Safety Report 8082972-X (Version None)
Quarter: 2012Q1

REPORT INFORMATION
  Report Type: 
  Country: None (occurrence: None)
  Receive Date: 20120127
  Receipt Date: 20110307
  Transmission Date: 20120608
  Serious: No
  Sender: FDA-Public Use
  Company Number: US-ABBOTT-11P-163-0710430-00

PATIENT
  Sex: Female
  Weight: 57.658 kg

DRUGS (3)
  1. PLAQUENIL [Concomitant]
     Indication: PRODUCT USED FOR UNKNOWN INDICATION
     Dates: start: 20090101, end: 20100701
  2. HUMIRA [Suspect]
     Indication: RHEUMATOID ARTHRITIS
     Dates: start: 20100401, end: 20100701
  3. METHOTREXATE [Concomitant]
     Indication: PRODUCT USED FOR UNKNOWN INDICATION
     Dates: start: 20090101, end: 20100701

REACTIONS (2)
  - ALOPECIA [None]
  - ANTINUCLEAR ANTIBODY POSITIVE [None]
